FAERS Safety Report 4705305-2 (Version None)
Quarter: 2005Q3

REPORT INFORMATION
  Report Type: 
  Country: None (occurrence: None)
  Receive Date: 20050701
  Receipt Date: 20050621
  Transmission Date: 20060218
  Serious: Yes (Hospitalization, Disabling)
  Sender: FDA-Public Use
  Company Number: US-ROCHE-408618

PATIENT
  Sex: Female

DRUGS (1)
  1. ACCUTANE [Suspect]
     Indication: ACNE
     Route: 048

REACTIONS (6)
  - ANHEDONIA [None]
  - ANXIETY [None]
  - AUTOIMMUNE HEPATITIS [None]
  - INJURY [None]
  - LIVER DISORDER [None]
  - PAIN [None]
